FAERS Safety Report 17916549 (Version 1)
Quarter: 2020Q2

REPORT INFORMATION
  Report Type: Spontaneous
  Country: US (occurrence: US)
  Receive Date: 20200619
  Receipt Date: 20200619
  Transmission Date: 20200714
  Serious: No
  Sender: FDA-Public Use
  Company Number: US-SUNOVION-2020SUN001756

PATIENT
  Age: 65 Year
  Sex: Female

DRUGS (2)
  1. LONHALA MAGNAIR [Suspect]
     Active Substance: GLYCOPYRROLATE
     Dosage: 25 MCG/ML
     Route: 055
  2. OXYGEN. [Concomitant]
     Active Substance: OXYGEN
     Route: 065

REACTIONS (2)
  - Feeling abnormal [Unknown]
  - Device issue [Unknown]
